FAERS Safety Report 18785315 (Version 20)
Quarter: 2024Q2

REPORT INFORMATION
  Report Type: Report from Study
  Country: US (occurrence: US)
  Receive Date: 20210125
  Receipt Date: 20240630
  Transmission Date: 20240716
  Serious: Yes (Death, Hospitalization, Other)
  Sender: FDA-Public Use
  Company Number: US-TAKEDA-US202000035

PATIENT
  Age: 75 Year
  Sex: Female
  Weight: 98 kg

DRUGS (10)
  1. HUMAN IMMUNOGLOBULIN G [Suspect]
     Active Substance: HUMAN IMMUNOGLOBULIN G
     Indication: Primary immunodeficiency syndrome
     Dosage: 40 GRAM
     Route: 042
  2. HUMAN IMMUNOGLOBULIN G [Suspect]
     Active Substance: HUMAN IMMUNOGLOBULIN G
     Indication: Immunodeficiency common variable
     Dosage: 20 GRAM
     Route: 042
  3. HUMAN IMMUNOGLOBULIN G [Suspect]
     Active Substance: HUMAN IMMUNOGLOBULIN G
     Dosage: 80 GRAM
     Route: 042
  4. HUMAN IMMUNOGLOBULIN G [Suspect]
     Active Substance: HUMAN IMMUNOGLOBULIN G
     Dosage: 80 GRAM, Q4WEEKS
     Route: 042
     Dates: start: 2015
  5. HUMAN IMMUNOGLOBULIN G [Suspect]
     Active Substance: HUMAN IMMUNOGLOBULIN G
     Dosage: 80 GRAM, MONTHLY
     Route: 042
     Dates: start: 2015
  6. HUMAN IMMUNOGLOBULIN G [Suspect]
     Active Substance: HUMAN IMMUNOGLOBULIN G
     Dosage: UNK UNK, Q4WEEKS
     Route: 042
     Dates: start: 202106
  7. HUMAN IMMUNOGLOBULIN G [Suspect]
     Active Substance: HUMAN IMMUNOGLOBULIN G
     Dosage: 90 GRAM, MONTHLY
     Route: 042
  8. CUVITRU [Suspect]
     Active Substance: HUMAN IMMUNOGLOBULIN G
     Indication: Primary immunodeficiency syndrome
     Dosage: 20 GRAM, 1/WEEK
     Route: 065
  9. NARCAN [Concomitant]
     Active Substance: NALOXONE HYDROCHLORIDE
     Dosage: UNK
     Route: 065
  10. LEVAQUIN [Concomitant]
     Active Substance: LEVOFLOXACIN
     Indication: Pneumonia
     Dosage: UNK
     Route: 065

REACTIONS (48)
  - Death [Fatal]
  - Acute respiratory failure [Unknown]
  - Osteomyelitis [Unknown]
  - Fall [Unknown]
  - Sensory loss [Unknown]
  - Confusional state [Unknown]
  - Disorientation [Unknown]
  - Lower limb fracture [Unknown]
  - Chest pain [Unknown]
  - COVID-19 pneumonia [Unknown]
  - Acute respiratory distress syndrome [Unknown]
  - Pneumonia [Unknown]
  - Hypervolaemia [Unknown]
  - Asthma [Unknown]
  - Back pain [Unknown]
  - Renal impairment [Unknown]
  - Arthritis [Unknown]
  - Carpal tunnel syndrome [Unknown]
  - Face injury [Unknown]
  - Limb injury [Unknown]
  - Joint injury [Unknown]
  - Memory impairment [Unknown]
  - Dental caries [Recovering/Resolving]
  - Subcutaneous abscess [Recovering/Resolving]
  - Accidental overdose [Unknown]
  - Blood potassium increased [Unknown]
  - Blood sodium increased [Unknown]
  - Blood electrolytes abnormal [Unknown]
  - Wound [Unknown]
  - Weight fluctuation [Unknown]
  - Vision blurred [Recovering/Resolving]
  - Pain [Unknown]
  - Balance disorder [Unknown]
  - Asthenia [Unknown]
  - Tremor [Unknown]
  - Dyspnoea [Unknown]
  - Dizziness [Unknown]
  - Proctalgia [Unknown]
  - Constipation [Unknown]
  - Urinary tract infection [Not Recovered/Not Resolved]
  - Carbon dioxide increased [Recovering/Resolving]
  - Procedural pain [Unknown]
  - Oxygen saturation decreased [Unknown]
  - Contusion [Recovering/Resolving]
  - Diarrhoea [Unknown]
  - Inappropriate schedule of product administration [Unknown]
  - Product dose omission issue [Unknown]
  - Prescription drug used without a prescription [Unknown]

NARRATIVE: CASE EVENT DATE: 20210118
